FAERS Safety Report 6891724-5 (Version None)
Quarter: 2010Q3

REPORT INFORMATION
  Report Type: 
  Country: None (occurrence: None)
  Receive Date: 20100731
  Receipt Date: 20080107
  Transmission Date: 20110219
  Serious: Yes (Other)
  Sender: FDA-Public Use
  Company Number: US-PFIZER INC-2007081770

PATIENT

DRUGS (1)
  1. CAMPTOSAR [Suspect]
     Indication: OESOPHAGEAL CARCINOMA

REACTIONS (2)
  - LUNG ABSCESS [None]
  - PANCREATITIS [None]
